FAERS Safety Report 7374572-1 (Version None)
Quarter: 2011Q1

REPORT INFORMATION
  Report Type: 
  Country: None (occurrence: None)
  Receive Date: 20110325
  Receipt Date: 20100510
  Transmission Date: 20110831
  Serious: No
  Sender: FDA-Public Use
  Company Number: US-MYLANLABS-2010S1005431

PATIENT
  Age: 48 Year
  Sex: Female

DRUGS (2)
  1. FENTANYL-100 [Suspect]
     Indication: PAIN
     Route: 062
     Dates: start: 20050524, end: 20100312
  2. FENTANYL-100 [Suspect]
     Indication: NECK PAIN
     Route: 062
     Dates: start: 20050524, end: 20100312

REACTIONS (4)
  - APPLICATION SITE PAIN [None]
  - APPLICATION SITE VESICLES [None]
  - LACERATION [None]
  - APPLICATION SITE SCAR [None]
